FAERS Safety Report 20520554 (Version 1)
Quarter: 2022Q1

REPORT INFORMATION
  Report Type: Spontaneous
  Country: RU (occurrence: RU)
  Receive Date: 20220225
  Receipt Date: 20220225
  Transmission Date: 20220423
  Serious: Yes (Other)
  Sender: FDA-Public Use
  Company Number: RU-NOVARTISPH-NVSC2022RU043431

PATIENT
  Age: 59 Year
  Sex: Male

DRUGS (12)
  1. CEFTAZIDIME [Suspect]
     Active Substance: CEFTAZIDIME
     Indication: Antibiotic therapy
     Dosage: UNK UNK, UNK
     Route: 065
     Dates: start: 202107, end: 202107
  2. DEXAMETHASONE [Suspect]
     Active Substance: DEXAMETHASONE
     Indication: Adrenocortical steroid therapy
     Dosage: 20 MG, QD
     Route: 062
     Dates: start: 20210712
  3. DEXAMETHASONE [Suspect]
     Active Substance: DEXAMETHASONE
     Dosage: 4 MG, QD (GRADUAL DECREASE BY 4 MG/DAY EVERY 4 DAYS)
     Route: 062
     Dates: end: 20210729
  4. ACETYLCYSTEINE [Suspect]
     Active Substance: ACETYLCYSTEINE
     Indication: Drug therapy
     Dosage: UNK UNK, UNK
     Route: 065
     Dates: start: 202107, end: 202107
  5. NADROPARIN CALCIUM [Suspect]
     Active Substance: NADROPARIN CALCIUM
     Indication: Anticoagulant therapy
     Dosage: UNK
     Route: 065
     Dates: start: 202107, end: 202107
  6. IMIPENEM [Suspect]
     Active Substance: IMIPENEM
     Indication: Antibiotic therapy
     Dosage: UNK
     Route: 065
     Dates: start: 202107, end: 202107
  7. SPIRONOLACTONE [Suspect]
     Active Substance: SPIRONOLACTONE
     Indication: Product used for unknown indication
     Dosage: UNK UNK, UNK
     Route: 065
     Dates: start: 202107, end: 202107
  8. DIGOXIN [Suspect]
     Active Substance: DIGOXIN
     Indication: Product used for unknown indication
     Dosage: UNK UNK, UNK
     Route: 065
     Dates: start: 202107
  9. TIGECYCLINE [Suspect]
     Active Substance: TIGECYCLINE
     Indication: Antibiotic therapy
     Dosage: UNK UNK, UNK
     Route: 065
     Dates: start: 202107, end: 202107
  10. FOSFOMYCIN [Suspect]
     Active Substance: FOSFOMYCIN
     Indication: Antibiotic therapy
     Dosage: UNK UNK, UNK
     Route: 065
     Dates: start: 202107, end: 202107
  11. POLYMYXIN B [Suspect]
     Active Substance: POLYMYXIN B
     Indication: Antibiotic therapy
     Dosage: UNK UNK, UNK
     Route: 065
     Dates: start: 202107, end: 202107
  12. RIVAROXABAN [Suspect]
     Active Substance: RIVAROXABAN
     Indication: Anticoagulant therapy
     Dosage: UNK UNK, UNK
     Route: 065
     Dates: start: 202107, end: 202107

REACTIONS (1)
  - Computerised tomogram abnormal [Recovering/Resolving]

NARRATIVE: CASE EVENT DATE: 20210101
